FAERS Safety Report 8289100-6 (Version None)
Quarter: 2012Q2

REPORT INFORMATION
  Report Type: 
  Country: None (occurrence: None)
  Receive Date: 20120417
  Receipt Date: 20120413
  Transmission Date: 20120825
  Serious: Yes (Death)
  Sender: FDA-Public Use
  Company Number: US-JNJFOC-20120405869

PATIENT
  Sex: Female

DRUGS (56)
  1. DOXORUBICIN HCL [Suspect]
     Dosage: CYCLE 7
     Route: 042
  2. BLEOMYCIN SULFATE [Suspect]
     Dosage: CYCLE 6
     Route: 042
  3. BLEOMYCIN SULFATE [Suspect]
     Dosage: CYCLE 1
     Route: 042
  4. ETOPOSIDE [Suspect]
     Indication: HODGKIN'S DISEASE
     Dosage: CYCLE 4
     Route: 042
  5. VINCRISTINE [Suspect]
     Dosage: CYCLE 6
     Route: 042
  6. VINCRISTINE [Suspect]
     Dosage: CYCLE 5
     Route: 042
  7. VINBLASTINE SULFATE [Suspect]
     Dosage: CYCLE 2
     Route: 042
  8. DOXORUBICIN HCL [Suspect]
     Dosage: CYCLE 6
     Route: 042
  9. BLEOMYCIN SULFATE [Suspect]
     Dosage: CYCLE 3
     Route: 042
  10. CYCLOPHOSPHAMIDE [Suspect]
     Indication: HODGKIN'S DISEASE
     Dosage: CYCLE 2
     Route: 042
  11. VINCRISTINE [Suspect]
     Dosage: CYCLE 3
     Route: 042
  12. PREDNISONE TAB [Suspect]
     Dosage: CYCLE 8
     Route: 048
  13. PREDNISONE TAB [Suspect]
     Dosage: CYCLE 3
     Route: 048
  14. PROCARBAZINE HYDROCHLORIDE [Suspect]
     Dosage: CYCLE 7
     Route: 065
  15. VINBLASTINE SULFATE [Suspect]
     Dosage: CYCLE 1
     Route: 042
  16. DOXORUBICIN HCL [Suspect]
     Dosage: CYCLE 3
     Route: 042
  17. PREDNISONE TAB [Suspect]
     Indication: HODGKIN'S DISEASE
     Dosage: CYCLE 5
     Route: 048
  18. PREDNISONE TAB [Suspect]
     Dosage: CYCLE 7
     Route: 048
  19. PREDNISONE TAB [Suspect]
     Dosage: CYCLE 1
     Route: 048
  20. PROCARBAZINE HYDROCHLORIDE [Suspect]
     Indication: HODGKIN'S DISEASE
     Dosage: CYCLE 5
     Route: 065
  21. DOXORUBICIN HCL [Suspect]
     Dosage: CYCLE 4
     Route: 042
  22. BLEOMYCIN SULFATE [Suspect]
     Dosage: CYCLE 5
     Route: 042
  23. BLEOMYCIN SULFATE [Suspect]
     Dosage: CYCLE 2
     Route: 042
  24. ETOPOSIDE [Suspect]
     Dosage: CYCLE 2
     Route: 042
  25. CYCLOPHOSPHAMIDE [Suspect]
     Dosage: CYCLE 6
     Route: 042
  26. PROCARBAZINE HYDROCHLORIDE [Suspect]
     Dosage: CYCLE 6
     Route: 065
  27. PROCARBAZINE HYDROCHLORIDE [Suspect]
     Dosage: CYCLE 2
     Route: 065
  28. BLEOMYCIN SULFATE [Suspect]
     Dosage: CYCLE 7
     Route: 042
  29. BLEOMYCIN SULFATE [Suspect]
     Dosage: CYCLE 4
     Route: 042
  30. ETOPOSIDE [Suspect]
     Dosage: CYCLE 1
     Route: 042
  31. CYCLOPHOSPHAMIDE [Suspect]
     Dosage: CYCLE 5
     Route: 042
  32. VINCRISTINE [Suspect]
     Indication: HODGKIN'S DISEASE
     Dosage: CYCLE 1
     Route: 042
  33. VINCRISTINE [Suspect]
     Dosage: CYCLE 4
     Route: 042
  34. PREDNISONE TAB [Suspect]
     Dosage: CYCLE 4
     Route: 048
  35. PROCARBAZINE HYDROCHLORIDE [Suspect]
     Dosage: CYCLE 4
     Route: 065
  36. PROCARBAZINE HYDROCHLORIDE [Suspect]
     Dosage: CYCLE 3
     Route: 065
  37. DOXORUBICIN HCL [Suspect]
     Indication: HODGKIN'S DISEASE
     Dosage: CYCLE 1
     Route: 042
  38. BLEOMYCIN SULFATE [Suspect]
     Indication: HODGKIN'S DISEASE
     Dosage: CYCLE 8
     Route: 042
  39. CYCLOPHOSPHAMIDE [Suspect]
     Dosage: CYCLE 1
     Route: 042
  40. CYCLOPHOSPHAMIDE [Suspect]
     Dosage: CYCLE 3
     Route: 042
  41. CYCLOPHOSPHAMIDE [Suspect]
     Dosage: CYCLE 4
     Route: 042
  42. VINCRISTINE [Suspect]
     Dosage: CYCLE 8
     Route: 042
  43. PROCARBAZINE HYDROCHLORIDE [Suspect]
     Dosage: CYCLE 8
     Route: 065
  44. VINBLASTINE SULFATE [Suspect]
     Dosage: CYCLE 3
     Route: 042
  45. DOXORUBICIN HCL [Suspect]
     Dosage: CYCLE 8
     Route: 042
  46. VINCRISTINE [Suspect]
     Dosage: CYCLE 2
     Route: 042
  47. PROCARBAZINE HYDROCHLORIDE [Suspect]
     Dosage: CYCLE 1
     Route: 065
  48. VINBLASTINE SULFATE [Suspect]
     Indication: HODGKIN'S DISEASE
     Dosage: CYCLE 4
     Route: 042
  49. DOXORUBICIN HCL [Suspect]
     Dosage: CYCLE 5
     Route: 042
  50. DOXORUBICIN HCL [Suspect]
     Dosage: CYCLE 2
     Route: 042
  51. ETOPOSIDE [Suspect]
     Dosage: CYCLE 3
     Route: 042
  52. CYCLOPHOSPHAMIDE [Suspect]
     Dosage: CYCLE 8
     Route: 042
  53. CYCLOPHOSPHAMIDE [Suspect]
     Dosage: CYCLE 7
     Route: 042
  54. VINCRISTINE [Suspect]
     Dosage: CYCLE 7
     Route: 042
  55. PREDNISONE TAB [Suspect]
     Dosage: CYCLE 6
     Route: 048
  56. PREDNISONE TAB [Suspect]
     Dosage: CYCLE 2
     Route: 048

REACTIONS (1)
  - HODGKIN'S DISEASE RECURRENT [None]
